FAERS Safety Report 7551728-6 (Version None)
Quarter: 2011Q2

REPORT INFORMATION
  Report Type: 
  Country: None (occurrence: None)
  Receive Date: 20110616
  Receipt Date: 20110527
  Transmission Date: 20111010
  Serious: Yes (Hospitalization)
  Sender: FDA-Public Use
  Company Number: A0866137A

PATIENT
  Age: 61 Year
  Sex: Female
  Weight: 127.7 kg

DRUGS (25)
  1. FLEXERIL [Concomitant]
  2. BYETTA [Concomitant]
  3. BUSPAR [Concomitant]
  4. FIORINAL [Concomitant]
  5. DITROPAN XL [Concomitant]
  6. PROTONIX [Concomitant]
  7. SULAR [Concomitant]
  8. AVALIDE [Concomitant]
  9. FLONASE [Concomitant]
  10. TOPAMAX [Concomitant]
  11. TOPROL-XL [Concomitant]
  12. ASPIRIN [Concomitant]
  13. LIPITOR [Concomitant]
  14. ACCOLATE [Concomitant]
  15. LASIX [Concomitant]
  16. TRAMADOL HCL [Concomitant]
  17. AVANDIA [Suspect]
     Dates: start: 20010101
  18. LANTUS [Concomitant]
  19. VYTORIN [Concomitant]
  20. EFFEXOR XR [Concomitant]
  21. CLARINEX [Concomitant]
  22. TRAZODONE HCL [Concomitant]
  23. NORVASC [Concomitant]
  24. HYZAAR [Concomitant]
  25. CRESTOR [Concomitant]

REACTIONS (4)
  - CORONARY ARTERY DISEASE [None]
  - RENAL FAILURE [None]
  - CHEST PAIN [None]
  - DYSPNOEA [None]
